FAERS Safety Report 23455659 (Version 1)
Quarter: 2024Q1

REPORT INFORMATION
  Report Type: Spontaneous
  Country: US (occurrence: None)
  Receive Date: 20240129
  Receipt Date: 20240129
  Transmission Date: 20240410
  Serious: Yes (Hospitalization)
  Sender: FDA-Public Use
  Company Number: None

PATIENT
  Age: 54 Year
  Sex: Male
  Weight: 64.4 kg

DRUGS (1)
  1. CARBOPLATIN [Suspect]
     Active Substance: CARBOPLATIN
     Indication: Lung neoplasm malignant
     Route: 042
     Dates: start: 20231027, end: 20231229

REACTIONS (3)
  - Respiratory distress [None]
  - Infusion related reaction [None]
  - Cyanosis [None]

NARRATIVE: CASE EVENT DATE: 20231229
